FAERS Safety Report 4267242-X (Version None)
Quarter: 2004Q1

REPORT INFORMATION
  Report Type: 
  Country: None (occurrence: None)
  Receive Date: 20040107
  Receipt Date: 20031230
  Transmission Date: 20041129
  Serious: Yes (Other)
  Sender: FDA-Public Use
  Company Number: 200314045BCC

PATIENT
  Age: 46 Year
  Sex: Male
  Weight: 117.9352 kg

DRUGS (1)
  1. CAMPHO-PHENIQUE [Suspect]
     Indication: HERPES SIMPLEX
     Dosage: TOPICAL
     Route: 061

REACTIONS (1)
  - FACIAL PALSY [None]
